FAERS Safety Report 7425767-X (Version None)
Quarter: 2011Q2

REPORT INFORMATION
  Report Type: 
  Country: None (occurrence: None)
  Receive Date: 20110420
  Receipt Date: 20110412
  Transmission Date: 20111010
  Serious: Yes (Other)
  Sender: FDA-Public Use
  Company Number: TN-ASTRAZENECA-2011SE20605

PATIENT
  Age: 30 Year
  Sex: Male

DRUGS (8)
  1. PROPOFOL [Concomitant]
     Dosage: 100 MG/KG/H
     Route: 042
  2. FENTANYL [Concomitant]
     Indication: SEDATION
     Route: 042
  3. HYPERBARIC BUPIVACAINE [Suspect]
     Indication: SPINAL ANAESTHESIA
     Route: 037
  4. PROPOFOL [Concomitant]
     Indication: GENERAL ANAESTHESIA
     Route: 042
  5. TRANEXAMIC ACID [Suspect]
     Indication: SPINAL ANAESTHESIA
     Route: 037
  6. MIDAZOLAM [Concomitant]
     Indication: SEDATION
     Route: 042
  7. FENTANYL [Concomitant]
     Dosage: 2 UG/KG/45 MIN
     Route: 042
  8. CELOCURINE [Concomitant]
     Indication: GENERAL ANAESTHESIA
     Route: 042

REACTIONS (4)
  - CONVULSION [None]
  - VENTRICULAR ARRHYTHMIA [None]
  - WRONG DRUG ADMINISTERED [None]
  - MYOCLONUS [None]
